FAERS Safety Report 17787391 (Version 1)
Quarter: 2020Q2

REPORT INFORMATION
  Report Type: Spontaneous
  Country: US (occurrence: US)
  Receive Date: 20200514
  Receipt Date: 20200514
  Transmission Date: 20200714
  Serious: No
  Sender: FDA-Public Use
  Company Number: US-SA-2020SA120665

PATIENT
  Age: 50 Year
  Sex: Female

DRUGS (17)
  1. PRILOSEC [Concomitant]
     Active Substance: OMEPRAZOLE MAGNESIUM
  2. LEUPROLIDE [LEUPRORELIN] [Concomitant]
     Active Substance: LEUPROLIDE ACETATE
  3. DIAZEPAM. [Concomitant]
     Active Substance: DIAZEPAM
  4. PAXIL [PIROXICAM] [Concomitant]
     Active Substance: PIROXICAM
  5. PROGESTERONE. [Concomitant]
     Active Substance: PROGESTERONE
  6. DOXYCYCLINE HYCLATE. [Concomitant]
     Active Substance: DOXYCYCLINE HYCLATE
  7. ESTRACE [Concomitant]
     Active Substance: ESTRADIOL
  8. METHYL PRED [Concomitant]
     Active Substance: METHYLPREDNISOLONE
  9. DUPIXENT [Suspect]
     Active Substance: DUPILUMAB
     Indication: ASTHMA
     Dosage: 200 MG, QOW
     Route: 058
     Dates: start: 20200218
  10. MEDROL [Concomitant]
     Active Substance: METHYLPREDNISOLONE
  11. MULTIVITAMINS [VITAMINS NOS] [Concomitant]
     Active Substance: VITAMINS
  12. AZMACORT [Concomitant]
     Active Substance: TRIAMCINOLONE ACETONIDE
  13. LUPRON [Concomitant]
     Active Substance: LEUPROLIDE ACETATE
  14. SINGULAIR [Concomitant]
     Active Substance: MONTELUKAST SODIUM
  15. VITAMIN D [VITAMIN D NOS] [Concomitant]
     Active Substance: VITAMIN D NOS
  16. COMBIVENT [Concomitant]
     Active Substance: ALBUTEROL SULFATE\IPRATROPIUM BROMIDE
  17. ZITHROMAX [Concomitant]
     Active Substance: AZITHROMYCIN DIHYDRATE

REACTIONS (1)
  - Injection site erythema [Unknown]

NARRATIVE: CASE EVENT DATE: 2020
